FAERS Safety Report 16591728 (Version 1)
Quarter: 2019Q3

REPORT INFORMATION
  Report Type: Spontaneous
  Country: US (occurrence: US)
  Receive Date: 20190718
  Receipt Date: 20190718
  Transmission Date: 20191004
  Serious: Yes (Other)
  Sender: FDA-Public Use
  Company Number: US-PFIZER INC-2019301824

PATIENT
  Age: 77 Year
  Sex: Female
  Weight: 65.77 kg

DRUGS (5)
  1. PILOCARPINE HYDROCHLORIDE. [Concomitant]
     Active Substance: PILOCARPINE HYDROCHLORIDE
     Indication: DRY MOUTH
     Dosage: 5 MG, 2X/DAY
     Route: 048
  2. ESCITALOPRAM [Concomitant]
     Active Substance: ESCITALOPRAM OXALATE
     Indication: DEPRESSION
     Dosage: 10 MG, DAILY
     Route: 048
  3. ALPRAZOLAM. [Concomitant]
     Active Substance: ALPRAZOLAM
     Indication: DEPRESSION
     Dosage: 1 MG, AS NEEDED (1MG TABLET BY MOUTH 3 TIMES AS NEEDED  )
     Route: 048
  4. LYRICA [Suspect]
     Active Substance: PREGABALIN
     Indication: NEURALGIA
     Dosage: 50 MG, 1X/DAY (AT BEDTIME AND ONE WHEN SHE STARTS HAVING NERVE PAIN IN HER FOOT)
     Route: 048
  5. OXYCODONE [Concomitant]
     Active Substance: OXYCODONE
     Indication: PAIN
     Dosage: 3 DF, DAILY

REACTIONS (5)
  - Somnolence [Unknown]
  - Localised infection [Unknown]
  - Intentional product misuse [Unknown]
  - Back pain [Unknown]
  - Hypoaesthesia [Unknown]
